FAERS Safety Report 10029300 (Version 5)
Quarter: 2015Q2

REPORT INFORMATION
  Report Type: Spontaneous
  Country: US (occurrence: US)
  Receive Date: 20140321
  Receipt Date: 20150629
  Transmission Date: 20150821
  Serious: Yes (Death, Hospitalization, Other)
  Sender: FDA-Public Use
  Company Number: US-SANOFI-AVENTIS-2012SA066647

PATIENT
  Age: 70 Year
  Sex: Female

DRUGS (5)
  1. COUMADIN [Concomitant]
     Active Substance: WARFARIN SODIUM
  2. PLAVIX [Suspect]
     Active Substance: CLOPIDOGREL BISULFATE
     Indication: CEREBROVASCULAR ACCIDENT
     Dosage: THERAPY DATES: FIRST TAKEN 2/04?LAST TAKEN: 1/08
     Route: 048
     Dates: start: 200402, end: 200801
  3. PLAVIX [Suspect]
     Active Substance: CLOPIDOGREL BISULFATE
     Indication: ARTERIAL REPAIR
     Dosage: THERAPY DATES: FIRST TAKEN 2/04?LAST TAKEN: 1/08
     Route: 048
     Dates: start: 200402, end: 200801
  4. PLAVIX [Suspect]
     Active Substance: CLOPIDOGREL BISULFATE
     Indication: ANTICOAGULANT THERAPY
     Dosage: THERAPY DATES: FIRST TAKEN 2/04?LAST TAKEN: 1/08
     Route: 048
     Dates: start: 200402, end: 200801
  5. ASPIRIN. [Concomitant]
     Active Substance: ASPIRIN
     Dates: start: 1984, end: 2008

REACTIONS (5)
  - Gastrointestinal haemorrhage [Unknown]
  - Thrombotic thrombocytopenic purpura [Unknown]
  - Multiple injuries [Unknown]
  - Ulcer haemorrhage [Unknown]
  - Death [Fatal]

NARRATIVE: CASE EVENT DATE: 200801
